APPROVED DRUG PRODUCT: MORPHINE SULFATE
Active Ingredient: MORPHINE SULFATE
Strength: 100MG/5ML
Dosage Form/Route: SOLUTION;ORAL
Application: A201574 | Product #001 | TE Code: AA
Applicant: PADAGIS US LLC
Approved: Aug 6, 2012 | RLD: No | RS: No | Type: RX